FAERS Safety Report 16132999 (Version 2)
Quarter: 2019Q2

REPORT INFORMATION
  Report Type: Spontaneous
  Country: US (occurrence: US)
  Receive Date: 20190329
  Receipt Date: 20190528
  Transmission Date: 20190711
  Serious: No
  Sender: FDA-Public Use
  Company Number: US-PFIZER INC-2019128142

PATIENT
  Age: 58 Year
  Sex: Male
  Weight: 77.11 kg

DRUGS (1)
  1. NEURONTIN [Suspect]
     Active Substance: GABAPENTIN
     Dosage: UNK, DAILY (1500 TO 1700MG PER DAY)

REACTIONS (1)
  - Drug ineffective [Unknown]
